FAERS Safety Report 11065883 (Version 2)
Quarter: 2015Q2

REPORT INFORMATION
  Report Type: Spontaneous
  Country: US (occurrence: US)
  Receive Date: 20150425
  Receipt Date: 20150525
  Transmission Date: 20150821
  Serious: Yes (Other)
  Sender: FDA-Public Use
  Company Number: US-JNJFOC-20110711722

PATIENT
  Age: 58 Year
  Sex: Male

DRUGS (1)
  1. LEVAQUIN [Suspect]
     Active Substance: LEVOFLOXACIN
     Indication: PRODUCT USED FOR UNKNOWN INDICATION
     Route: 048
     Dates: start: 20090505

REACTIONS (3)
  - Tendonitis [Recovering/Resolving]
  - Tendon rupture [Recovering/Resolving]
  - Tendon pain [Unknown]

NARRATIVE: CASE EVENT DATE: 20090615
